FAERS Safety Report 13932083 (Version 2)
Quarter: 2017Q4

REPORT INFORMATION
  Report Type: Spontaneous
  Country: US (occurrence: US)
  Receive Date: 20170904
  Receipt Date: 20171107
  Transmission Date: 20180320
  Serious: No
  Sender: FDA-Public Use
  Company Number: US-PFIZER INC-2017086370

PATIENT
  Age: 68 Year
  Sex: Male

DRUGS (2)
  1. INLYTA [Suspect]
     Active Substance: AXITINIB
     Dosage: 4 MG, 2X/DAY [4 TWICE DAILY]
     Route: 048
     Dates: start: 20150615
  2. INLYTA [Suspect]
     Active Substance: AXITINIB
     Indication: LUNG NEOPLASM MALIGNANT
     Dosage: 4 MG, 2X/DAY [4 TWICE DAILY]
     Route: 048
     Dates: start: 20160329

REACTIONS (6)
  - Oral discomfort [Unknown]
  - Dry mouth [Unknown]
  - Diarrhoea [Unknown]
  - Product use in unapproved indication [Unknown]
  - Decreased appetite [Unknown]
  - Dysphonia [Unknown]

NARRATIVE: CASE EVENT DATE: 20160329
